FAERS Safety Report 24176493 (Version 1)
Quarter: 2024Q3

REPORT INFORMATION
  Report Type: Report from Study
  Country: US (occurrence: None)
  Receive Date: 20240806
  Receipt Date: 20240806
  Transmission Date: 20241016
  Serious: Yes (Disabling, Other)
  Sender: ASTRAZENECA
  Company Number: 2023A237163

PATIENT
  Sex: Male

DRUGS (1)
  1. LYNPARZA [Suspect]
     Active Substance: OLAPARIB
     Dosage: 150MG TABLET- TAKE 2 TABLETS BY MOUTH EVERY MORNING AND 2 TABLETS BY MOUTH EVERY EVENING
     Route: 048

REACTIONS (1)
  - Blindness [Unknown]
